FAERS Safety Report 8538499-1 (Version None)
Quarter: 2012Q3

REPORT INFORMATION
  Report Type: 
  Country: None (occurrence: None)
  Receive Date: 20120726
  Receipt Date: 20120716
  Transmission Date: 20120928
  Serious: Yes (Hospitalization)
  Sender: FDA-Public Use
  Company Number: DE-VERTEX PHARMACEUTICALS INC.-000000000000001217

PATIENT
  Sex: Male

DRUGS (4)
  1. OTHER DRUGS (UNSPECIFIED) [Concomitant]
     Indication: PRODUCT USED FOR UNKNOWN INDICATION
     Dosage: DOSAGE FORM: UNSPECIFIED
     Route: 065
  2. OTHER DRUGS (UNSPECIFIED) [Concomitant]
     Dosage: DOSAGE FORM: UNSPECIFIED
     Route: 065
  3. OTHER DRUGS (UNSPECIFIED) [Concomitant]
     Route: 065
  4. INCIVO [Suspect]
     Indication: PRODUCT USED FOR UNKNOWN INDICATION
     Dosage: DOSAGE FORM: TABLET
     Route: 048

REACTIONS (1)
  - DERMATITIS [None]
